FAERS Safety Report 4315062-X (Version None)
Quarter: 2004Q1

REPORT INFORMATION
  Report Type: 
  Country: None (occurrence: None)
  Receive Date: 20040309
  Receipt Date: 20040225
  Transmission Date: 20041129
  Serious: Yes (Other)
  Sender: FDA-Public Use
  Company Number: JP_040202701

PATIENT
  Age: 70 Year
  Sex: Male

DRUGS (3)
  1. VINBLASTINE SULFATE [Suspect]
     Indication: PROSTATE CANCER
  2. ESTRAMUSTINE PHOSPHATE [Concomitant]
  3. DIETHYLSTILBESTROL [Concomitant]

REACTIONS (4)
  - CONDITION AGGRAVATED [None]
  - METASTASES TO MUSCLE [None]
  - PANCREATIC NEOPLASM [None]
  - PROSTATE CANCER [None]
